FAERS Safety Report 10395414 (Version 1)
Quarter: 2014Q1

REPORT INFORMATION
  Report Type: Spontaneous
  Country: US (occurrence: None)
  Receive Date: 20130606
  Receipt Date: 20130606
  Transmission Date: 20141002
  Serious: Yes (Other)
  Sender: FDA-Public Use
  Company Number: 2012PROUSA01182

PATIENT
  Age: 80 Year
  Sex: Male
  Weight: 71.7 kg

DRUGS (3)
  1. PROVENGE (SIPULEUCEL-T) SUSPENSION, 250ML [Suspect]
     Indication: PROSTATE CANCER METASTATIC
     Dosage: SINGLE
     Route: 042
     Dates: start: 20120301, end: 20120301
  2. TYLENOL?/00020001/ (PARACETAMOL) [Concomitant]
  3. ADVIL /00044201/ (MEFENAMIC ACID) [Concomitant]

REACTIONS (5)
  - Disease progression [None]
  - Malaise [None]
  - Cheilitis [None]
  - Pyrexia [None]
  - Chills [None]
